FAERS Safety Report 25763710 (Version 1)
Quarter: 2025Q3

REPORT INFORMATION
  Report Type: Spontaneous
  Country: US (occurrence: US)
  Receive Date: 20250905
  Receipt Date: 20250905
  Transmission Date: 20251020
  Serious: No
  Sender: DOMPE FARMACEUTICI
  Company Number: US-FARMAPROD-202410-3762

PATIENT
  Sex: Female

DRUGS (9)
  1. OXERVATE [Suspect]
     Active Substance: CENEGERMIN-BKBJ
     Indication: Neurotrophic keratopathy
     Route: 047
     Dates: start: 20240919
  2. METROGEL [Concomitant]
     Active Substance: METRONIDAZOLE
  3. FLORAJEN DIGESTION [Concomitant]
  4. MAGNESIUM [Concomitant]
     Active Substance: MAGNESIUM
  5. IMODIUM [Concomitant]
     Active Substance: LOPERAMIDE HYDROCHLORIDE
  6. LOSARTAN POTASSIUM [Concomitant]
     Active Substance: LOSARTAN POTASSIUM
  7. HUMALOG KWIKPEN [Concomitant]
     Active Substance: INSULIN LISPRO
  8. LANTUS SOLOSTAR [Concomitant]
     Active Substance: INSULIN GLARGINE
  9. SOOTHE HYDRATION [Concomitant]
     Active Substance: POVIDONE

REACTIONS (1)
  - Kidney infection [Unknown]
